FAERS Safety Report 16031035 (Version 1)
Quarter: 2019Q1

REPORT INFORMATION
  Report Type: Spontaneous
  Country: US (occurrence: US)
  Receive Date: 20190304
  Receipt Date: 20190304
  Transmission Date: 20190418
  Serious: Yes (Disabling, Other)
  Sender: FDA-Public Use
  Company Number: US-GILEAD-2019-0394110

PATIENT
  Age: 62 Year
  Sex: Female

DRUGS (3)
  1. EPCLUSA [Suspect]
     Active Substance: SOFOSBUVIR\VELPATASVIR
     Indication: CHRONIC HEPATITIS C
     Dosage: 1 DF
     Route: 048
     Dates: start: 20190203
  2. LISINOPRIL. [Concomitant]
     Active Substance: LISINOPRIL
  3. EFFEXOR [Concomitant]
     Active Substance: VENLAFAXINE HYDROCHLORIDE

REACTIONS (7)
  - Fall [Unknown]
  - Headache [Unknown]
  - Disability [Unknown]
  - Cartilage injury [Unknown]
  - Middle insomnia [Unknown]
  - Tooth extraction [Unknown]
  - Wrist fracture [Unknown]

NARRATIVE: CASE EVENT DATE: 201902
